FAERS Safety Report 6529542-X (Version None)
Quarter: 2010Q1

REPORT INFORMATION
  Report Type: 
  Country: None (occurrence: None)
  Receive Date: 20100107
  Receipt Date: 20091229
  Transmission Date: 20100710
  Serious: Yes (Hospitalization)
  Sender: FDA-Public Use
  Company Number: US-SP-2009-04120

PATIENT
  Age: 15 Year
  Sex: Female

DRUGS (12)
  1. MENACTRA [Suspect]
     Indication: IMMUNISATION
     Route: 065
     Dates: start: 20090811
  2. MENACTRA [Suspect]
     Route: 065
     Dates: start: 20090811
  3. MENACTRA [Suspect]
     Route: 065
     Dates: start: 20090811
  4. MENACTRA [Suspect]
     Route: 065
     Dates: start: 20090811
  5. TUBERSOL [Suspect]
     Indication: TUBERCULIN TEST
     Route: 065
     Dates: start: 20090811
  6. TUBERSOL [Suspect]
     Route: 065
     Dates: start: 20090811
  7. TUBERSOL [Suspect]
     Route: 065
     Dates: start: 20090811
  8. TUBERSOL [Suspect]
     Route: 065
     Dates: start: 20090811
  9. HUMAN PAPILLOMAVIRUS VACCINE [Suspect]
     Indication: IMMUNISATION
     Route: 030
     Dates: start: 20090811
  10. HUMAN PAPILLOMAVIRUS VACCINE [Suspect]
     Route: 030
     Dates: start: 20090811
  11. HUMAN PAPILLOMAVIRUS VACCINE [Suspect]
     Route: 030
     Dates: start: 20090811
  12. HUMAN PAPILLOMAVIRUS VACCINE [Suspect]
     Route: 030
     Dates: start: 20090811

REACTIONS (12)
  - AMNESIA [None]
  - ANXIETY [None]
  - ASTHENIA [None]
  - DIZZINESS [None]
  - HALLUCINATION [None]
  - HEART RATE INCREASED [None]
  - HYPOAESTHESIA [None]
  - INSOMNIA [None]
  - LETHARGY [None]
  - PSYCHOTIC DISORDER [None]
  - SPEECH DISORDER [None]
  - TREMOR [None]
